FAERS Safety Report 21976438 (Version 5)
Quarter: 2023Q2

REPORT INFORMATION
  Report Type: Report from Study
  Country: CA (occurrence: CA)
  Receive Date: 20230210
  Receipt Date: 20230614
  Transmission Date: 20230721
  Serious: Yes (Other)
  Sender: FDA-Public Use
  Company Number: CA-JNJFOC-20230109560

PATIENT
  Age: 15 Year
  Sex: Female
  Weight: 86 kg

DRUGS (6)
  1. STELARA [Suspect]
     Active Substance: USTEKINUMAB
     Indication: Crohn^s disease
     Route: 042
     Dates: start: 202208
  2. STELARA [Suspect]
     Active Substance: USTEKINUMAB
     Dosage: INJECTION GIVEN ON 17-OCT-2022
     Route: 058
     Dates: start: 20220901
  3. STELARA [Suspect]
     Active Substance: USTEKINUMAB
     Dosage: DOSE INCREASED
     Route: 058
  4. STELARA [Suspect]
     Active Substance: USTEKINUMAB
     Dosage: IV REINDUCTION REQUESTED: 520 MG IV THEN 90 MG SC Q. 4 WEEKS
     Route: 042
  5. PREDNISONE [Concomitant]
     Active Substance: PREDNISONE
     Indication: Product used for unknown indication
     Route: 065
  6. PREDNISONE [Concomitant]
     Active Substance: PREDNISONE
     Route: 065

REACTIONS (10)
  - Infusion related reaction [Recovered/Resolved]
  - Erythema [Recovered/Resolved]
  - Lip dry [Recovered/Resolved]
  - Haematochezia [Recovered/Resolved]
  - Influenza [Recovered/Resolved]
  - Faeces soft [Recovered/Resolved]
  - Defaecation urgency [Recovered/Resolved]
  - Diarrhoea [Recovered/Resolved]
  - Off label use [Unknown]
  - Product use issue [Unknown]

NARRATIVE: CASE EVENT DATE: 20230202
